FAERS Safety Report 6430353-4 (Version None)
Quarter: 2009Q4

REPORT INFORMATION
  Report Type: 
  Country: None (occurrence: None)
  Receive Date: 20091106
  Receipt Date: 20091030
  Transmission Date: 20100525
  Serious: Yes (Other)
  Sender: FDA-Public Use
  Company Number: SE-WYE-G04767109

PATIENT
  Age: 64 Year
  Sex: Male

DRUGS (1)
  1. TAZOCIN [Suspect]
     Dosage: DOSE UNKNOWN
     Dates: start: 20090902, end: 20090903

REACTIONS (1)
  - AUTOIMMUNE THROMBOCYTOPENIA [None]
